FAERS Safety Report 26102324 (Version 2)
Quarter: 2025Q4

REPORT INFORMATION
  Report Type: Spontaneous
  Country: EU (occurrence: EU)
  Receive Date: 20251128
  Receipt Date: 20251223
  Transmission Date: 20260117
  Serious: Yes (Other)
  Sender: TEVA
  Company Number: EU-TEVA-VS-3397155

PATIENT
  Age: 45 Year
  Sex: Male

DRUGS (3)
  1. OXALIPLATIN [Suspect]
     Active Substance: OXALIPLATIN
     Indication: Metastatic choriocarcinoma
     Dosage: A TOTAL OF 12 CYCLES AS A PART OF FOLFOX REGIMEN
     Route: 065
     Dates: start: 202211, end: 202305
  2. LEUCOVORIN [Suspect]
     Active Substance: LEUCOVORIN\LEUCOVORIN CALCIUM
     Indication: Metastatic choriocarcinoma
     Dosage: A TOTAL OF 12 CYCLES AS A PART OF FOLFOX REGIMEN
     Route: 065
     Dates: start: 202211, end: 202305
  3. FLUOROURACIL [Suspect]
     Active Substance: FLUOROURACIL
     Indication: Metastatic choriocarcinoma
     Dosage: A TOTAL OF 12 CYCLES AS A PART OF FOLFOX REGIMEN
     Route: 065
     Dates: start: 202211, end: 202305

REACTIONS (2)
  - Haematotoxicity [Unknown]
  - Therapeutic product effect incomplete [Unknown]
